FAERS Safety Report 9510025 (Version 1)
Quarter: 2013Q3

REPORT INFORMATION
  Report Type: Spontaneous
  Country: US (occurrence: US)
  Receive Date: 20130909
  Receipt Date: 20130909
  Transmission Date: 20140515
  Serious: No
  Sender: FDA-Public Use
  Company Number: US-BRISTOL-MYERS SQUIBB COMPANY-18857904

PATIENT
  Sex: Female

DRUGS (7)
  1. ABILIFY [Suspect]
  2. EFFEXOR [Concomitant]
  3. TRAZODONE HCL [Concomitant]
  4. LOSARTAN [Concomitant]
  5. ESTRADIOL [Concomitant]
  6. OMEPRAZOLE [Concomitant]
  7. SINGULAIR [Concomitant]

REACTIONS (2)
  - Dyskinesia [Unknown]
  - Balance disorder [Unknown]
